FAERS Safety Report 16170846 (Version 2)
Quarter: 2019Q3

REPORT INFORMATION
  Report Type: Spontaneous
  Country: US (occurrence: US)
  Receive Date: 20190408
  Receipt Date: 20190925
  Transmission Date: 20191004
  Serious: No
  Sender: FDA-Public Use
  Company Number: US-SHIRE-US201911519

PATIENT

DRUGS (1)
  1. ELAPRASE [Suspect]
     Active Substance: IDURSULFASE
     Indication: MUCOPOLYSACCHARIDOSIS II
     Dosage: 4 DOSAGE FORM, 1X/WEEK
     Route: 042
     Dates: start: 20170317

REACTIONS (2)
  - Aggression [Not Recovered/Not Resolved]
  - Eye swelling [Recovered/Resolved]
